FAERS Safety Report 18228753 (Version 1)
Quarter: 2020Q3

REPORT INFORMATION
  Report Type: Spontaneous
  Country: SE (occurrence: SE)
  Receive Date: 20200903
  Receipt Date: 20200903
  Transmission Date: 20201103
  Serious: Yes (Hospitalization)
  Sender: FDA-Public Use
  Company Number: SE-MYLANLABS-2020M1075120

PATIENT
  Age: 18 Year
  Sex: Female

DRUGS (1)
  1. PROMETHAZINE [Suspect]
     Active Substance: PROMETHAZINE HYDROCHLORIDE
     Indication: PRODUCT USED FOR UNKNOWN INDICATION
     Dosage: 1 UNK, TOTAL TVA?TRE KARTOR 25MG LERGIGAN MOTSVARANDE CIRKA 500?750MG
     Dates: start: 20200731, end: 20200731

REACTIONS (5)
  - Confusional state [Unknown]
  - Intentional overdose [Unknown]
  - Intentional self-injury [Unknown]
  - Toxicity to various agents [Unknown]
  - Tachycardia [Unknown]

NARRATIVE: CASE EVENT DATE: 20200731
